FAERS Safety Report 14561303 (Version 1)
Quarter: 2018Q1

REPORT INFORMATION
  Report Type: Spontaneous
  Country: US (occurrence: US)
  Receive Date: 20180222
  Receipt Date: 20180222
  Transmission Date: 20180509
  Serious: No
  Sender: FDA-Public Use
  Company Number: US-PFIZER INC-2018072692

PATIENT
  Age: 47 Year
  Sex: Female
  Weight: 138.35 kg

DRUGS (1)
  1. XELJANZ XR [Suspect]
     Active Substance: TOFACITINIB CITRATE
     Indication: RHEUMATOID ARTHRITIS
     Dosage: 11 MG, ONCE DAILY
     Route: 048
     Dates: start: 201708, end: 20180211

REACTIONS (6)
  - Fatigue [Recovering/Resolving]
  - Nasal congestion [Recovering/Resolving]
  - Influenza [Recovering/Resolving]
  - Bronchitis [Not Recovered/Not Resolved]
  - Cough [Recovering/Resolving]
  - Sinusitis [Recovered/Resolved]

NARRATIVE: CASE EVENT DATE: 20180209
